FAERS Safety Report 9725650 (Version 1)
Quarter: 2013Q4

REPORT INFORMATION
  Report Type: Spontaneous
  Country: US (occurrence: None)
  Receive Date: 20131202
  Receipt Date: 20131202
  Transmission Date: 20140711
  Serious: No
  Sender: FDA-Public Use
  Company Number: None

PATIENT
  Age: 68 Year
  Sex: Male
  Weight: 74.84 kg

DRUGS (1)
  1. METFORMIN [Suspect]
     Indication: TYPE 2 DIABETES MELLITUS
     Dosage: 500 MG/ONE TABLET  TWICE DAILY  TAKEN BY MOUTH
     Route: 048
     Dates: start: 20130601, end: 20131128

REACTIONS (6)
  - Product quality issue [None]
  - Drug ineffective [None]
  - Abdominal pain upper [None]
  - Diarrhoea [None]
  - Blood glucose abnormal [None]
  - Product substitution issue [None]
